FAERS Safety Report 9587420 (Version 1)
Quarter: 2013Q4

REPORT INFORMATION
  Report Type: Spontaneous
  Country: FR (occurrence: FR)
  Receive Date: 20131003
  Receipt Date: 20131003
  Transmission Date: 20140711
  Serious: Yes (Hospitalization)
  Sender: FDA-Public Use
  Company Number: US-ASTRAZENECA-2013SE73111

PATIENT
  Age: 66 Year
  Sex: Male

DRUGS (9)
  1. COKENZEN [Suspect]
     Indication: HYPERTENSION
     Dosage: 16+12.5 MG/MG EVERY DAY
     Route: 048
     Dates: start: 20100421
  2. GLUCOPHAGE [Suspect]
     Indication: TYPE 2 DIABETES MELLITUS
     Route: 048
     Dates: start: 2006, end: 20100419
  3. GLUCOPHAGE [Suspect]
     Indication: TYPE 2 DIABETES MELLITUS
     Route: 048
     Dates: start: 2011
  4. ZOCOR [Concomitant]
  5. PLAVIX [Concomitant]
  6. LERCAN [Concomitant]
  7. JANUVIA [Concomitant]
  8. SPIRIVA [Concomitant]
  9. DIAMICRON [Concomitant]

REACTIONS (1)
  - Lactic acidosis [Recovered/Resolved]
